FAERS Safety Report 19866991 (Version 7)
Quarter: 2023Q4

REPORT INFORMATION
  Report Type: Report from Study
  Country: DE (occurrence: DE)
  Receive Date: 20210922
  Receipt Date: 20231019
  Transmission Date: 20240109
  Serious: Yes (Hospitalization)
  Sender: FDA-Public Use
  Company Number: DE-JNJFOC-20210931667

PATIENT
  Age: 49 Year
  Sex: Female
  Weight: 84 kg

DRUGS (22)
  1. SIMPONI [Suspect]
     Active Substance: GOLIMUMAB
     Indication: Colitis ulcerative
     Dosage: MOST RECENT DOSE 9-SEP-2021
     Route: 058
     Dates: start: 20190312
  2. ASACOL [Concomitant]
     Active Substance: MESALAMINE
     Route: 065
     Dates: start: 20210822, end: 20230607
  3. ASACOL [Concomitant]
     Active Substance: MESALAMINE
     Route: 065
     Dates: start: 20230607
  4. CHOLECALCIFEROL [Concomitant]
     Active Substance: CHOLECALCIFEROL
     Indication: Vitamin D deficiency
     Dates: start: 20170926
  5. SOTALOL [Concomitant]
     Active Substance: SOTALOL
     Indication: Tachycardia paroxysmal
  6. METAMIZOLE [Concomitant]
     Active Substance: METAMIZOLE
     Dates: start: 20190108, end: 20200827
  7. METAMIZOLE [Concomitant]
     Active Substance: METAMIZOLE
     Dates: start: 20200828
  8. LEVOTHYROXINE [Concomitant]
     Active Substance: LEVOTHYROXINE
     Indication: Hypothyroidism
  9. AMINOSALICYLIC ACID [Concomitant]
     Active Substance: AMINOSALICYLIC ACID
     Dates: start: 20190402, end: 20200604
  10. AMINOSALICYLIC ACID [Concomitant]
     Active Substance: AMINOSALICYLIC ACID
     Dates: start: 20181002, end: 20190401
  11. AMINOSALICYLIC ACID [Concomitant]
     Active Substance: AMINOSALICYLIC ACID
     Dates: start: 20200605, end: 202010
  12. AMINOSALICYLIC ACID [Concomitant]
     Active Substance: AMINOSALICYLIC ACID
     Dates: start: 202010, end: 20210525
  13. AMINOSALICYLIC ACID [Concomitant]
     Active Substance: AMINOSALICYLIC ACID
     Dates: start: 20210526, end: 202108
  14. AMINOSALICYLIC ACID [Concomitant]
     Active Substance: AMINOSALICYLIC ACID
     Dates: start: 20210824, end: 20210826
  15. INFLUVAC TETRA [Concomitant]
     Active Substance: INFLUENZA VIRUS VACCINE QUADRIVALENT TYPE A+B
     Indication: Influenza immunisation
     Dates: start: 20211220, end: 20211220
  16. MESALAMINE [Concomitant]
     Active Substance: MESALAMINE
     Route: 048
     Dates: start: 2017, end: 20190604
  17. MESALAMINE [Concomitant]
     Active Substance: MESALAMINE
     Dates: start: 20190605, end: 20201201
  18. MESALAMINE [Concomitant]
     Active Substance: MESALAMINE
     Dates: start: 20201202, end: 202105
  19. MESALAMINE [Concomitant]
     Active Substance: MESALAMINE
     Dates: start: 202105, end: 20210525
  20. ENTYVIO [Concomitant]
     Active Substance: VEDOLIZUMAB
     Dates: start: 20211206, end: 20220316
  21. ENTYVIO [Concomitant]
     Active Substance: VEDOLIZUMAB
     Dates: start: 20220317
  22. COMIRNATY (TOZINAMERAN) [Concomitant]
     Active Substance: TOZINAMERAN
     Indication: COVID-19 immunisation
     Dates: start: 20210715, end: 20210715

REACTIONS (1)
  - COVID-19 [Recovered/Resolved]

NARRATIVE: CASE EVENT DATE: 20210909
